FAERS Safety Report 17726364 (Version 1)
Quarter: 2020Q2

REPORT INFORMATION
  Report Type: Spontaneous
  Country: AU (occurrence: AU)
  Receive Date: 20200430
  Receipt Date: 20200430
  Transmission Date: 20200714
  Serious: Yes (Other)
  Sender: FDA-Public Use
  Company Number: AU-SUN PHARMACEUTICAL INDUSTRIES LTD-2019R1-207201

PATIENT
  Age: 30 Year
  Sex: Female

DRUGS (3)
  1. IMMUNOGLOBULIN (IMMUNOGLOBULIN NOS) [Suspect]
     Active Substance: IMMUNE GLOBULIN NOS
     Indication: MYASTHENIA GRAVIS
     Dosage: 0.4 G/KG BODY WEIGHT DAILY FOR 5 DAYS AND THEN MONTHLY
     Route: 042
  2. PREDNISONE. [Suspect]
     Active Substance: PREDNISONE
     Indication: MYASTHENIA GRAVIS
     Dosage: 10 MILLIGRAM, DAILY
     Route: 048
  3. PREDNISONE. [Suspect]
     Active Substance: PREDNISONE
     Dosage: 25 MILLIGRAM, DAILY (SLOWLY INCREASED)
     Route: 048

REACTIONS (3)
  - Live birth [Unknown]
  - Foetal hypokinesia [Unknown]
  - Exposure during pregnancy [Unknown]
